FAERS Safety Report 8547543-7 (Version None)
Quarter: 2012Q3

REPORT INFORMATION
  Report Type: 
  Country: None (occurrence: None)
  Receive Date: 20120727
  Receipt Date: 20120330
  Transmission Date: 20120928
  Serious: No
  Sender: FDA-Public Use
  Company Number: US-ASTRAZENECA-2012SE21545

PATIENT
  Age: 47 Year
  Sex: Male
  Weight: 93 kg

DRUGS (20)
  1. SEROQUEL XR [Suspect]
     Route: 048
  2. SEROQUEL XR [Suspect]
     Route: 048
     Dates: start: 20120301
  3. SEROQUEL XR [Suspect]
     Route: 048
  4. SEROQUEL XR [Suspect]
     Route: 048
  5. SEROQUEL XR [Suspect]
     Route: 048
     Dates: start: 20120301
  6. EFFEXOR [Concomitant]
  7. SEROQUEL XR [Suspect]
     Indication: PSYCHOTIC DISORDER
     Route: 048
     Dates: start: 20111001
  8. SEROQUEL XR [Suspect]
     Route: 048
  9. SEROQUEL XR [Suspect]
     Route: 048
  10. CLOMAZEPINE [Concomitant]
  11. SEROQUEL XR [Suspect]
     Indication: DEPRESSION
     Route: 048
     Dates: start: 20111001
  12. SEROQUEL XR [Suspect]
     Route: 048
  13. SEROQUEL XR [Suspect]
     Route: 048
  14. SEROQUEL XR [Suspect]
     Route: 048
     Dates: start: 20120301
  15. SEROQUEL XR [Suspect]
     Route: 048
  16. SEROQUEL XR [Suspect]
     Route: 048
  17. SEROQUEL XR [Suspect]
     Indication: DELUSION
     Route: 048
     Dates: start: 20111001
  18. SEROQUEL XR [Suspect]
     Route: 048
  19. SEROQUEL XR [Suspect]
     Route: 048
  20. SEROQUEL XR [Suspect]
     Route: 048

REACTIONS (6)
  - INCREASED APPETITE [None]
  - WEIGHT INCREASED [None]
  - VISION BLURRED [None]
  - MOOD ALTERED [None]
  - SOMNOLENCE [None]
  - INTENTIONAL DRUG MISUSE [None]
